FAERS Safety Report 5991957-6 (Version None)
Quarter: 2008Q4

REPORT INFORMATION
  Report Type: 
  Country: None (occurrence: None)
  Receive Date: 20081211
  Receipt Date: 20081204
  Transmission Date: 20090506
  Serious: Yes (Other)
  Sender: FDA-Public Use
  Company Number: CN-ROXANE LABORATORIES, INC.-2008-RO-00361RO

PATIENT
  Age: 47 Year
  Sex: Female

DRUGS (5)
  1. METHOTREXATE [Suspect]
     Indication: GESTATIONAL TROPHOBLASTIC TUMOUR
     Route: 030
     Dates: start: 20050821
  2. LEUCOVORIN CALCIUM [Suspect]
     Indication: GESTATIONAL TROPHOBLASTIC TUMOUR
     Dates: start: 20050821
  3. CEFUROXIME [Concomitant]
     Indication: PLEURISY
     Dosage: 1.5G
     Route: 042
  4. CLINDAMYCIN HCL [Concomitant]
     Dosage: 1.8G
     Route: 042
  5. LEVOFLOXACIN [Concomitant]
     Dosage: 400MG
     Route: 042

REACTIONS (2)
  - PLEURISY [None]
  - PNEUMONITIS [None]
